FAERS Safety Report 6470226-4 (Version None)
Quarter: 2009Q4

REPORT INFORMATION
  Report Type: 
  Country: None (occurrence: None)
  Receive Date: 20091203
  Receipt Date: 20080107
  Transmission Date: 20100525
  Serious: Yes (Other)
  Sender: FDA-Public Use
  Company Number: US-ELI_LILLY_AND_COMPANY-US200711006670

PATIENT
  Sex: Female
  Weight: 59.864 kg

DRUGS (9)
  1. FORTEO [Suspect]
     Indication: OSTEOPOROSIS
     Dosage: UNK, UNK
     Dates: start: 20070928, end: 20071201
  2. PREVACID [Concomitant]
     Indication: GASTRIC DISORDER
     Dosage: 30 MG, UNK
  3. CLONIDINE [Concomitant]
  4. DIOVAN [Concomitant]
     Dosage: 160 MG, 2/D
  5. METFORMIN HCL [Concomitant]
     Dosage: 500 MG, 2/D
  6. LIPITOR [Concomitant]
     Dosage: 40 MG, UNK
  7. FELODIPINE [Concomitant]
     Dosage: 10.5 MG, 2/D
  8. HYDROCHLOROTHIAZIDE [Concomitant]
     Dosage: 25 MG, UNK
  9. ATENOLOL [Concomitant]
     Dosage: 50 MG, UNK

REACTIONS (5)
  - CHOLELITHIASIS [None]
  - GALLBLADDER DISORDER [None]
  - GASTROINTESTINAL DISORDER [None]
  - MALAISE [None]
  - RENAL CYST [None]
